FAERS Safety Report 8650453 (Version 2)
Quarter: 2012Q4

REPORT INFORMATION
  Report Type: 
  Country: US (occurrence: US)
  Receive Date: 20120705
  Receipt Date: 20120921
  Transmission Date: 20130627
  Serious: No
  Sender: FDA-Public Use
  Company Number: US-PFIZER INC-2012159803

PATIENT
  Age: 69 Year
  Sex: Male
  Weight: 82.54 kg

DRUGS (2)
  1. RAPAMUNE [Suspect]
     Indication: POSTOPERATIVE CARE
     Dosage: 5 mg (5 of 1mg), 1x/day
     Route: 048
     Dates: end: 201206
  2. CELLCEPT [Concomitant]
     Dosage: UNK

REACTIONS (5)
  - Epistaxis [Recovered/Resolved]
  - Dyspnoea [Recovered/Resolved]
  - Nasal congestion [Recovered/Resolved]
  - Headache [Recovered/Resolved]
  - Platelet count decreased [Unknown]
